FAERS Safety Report 19014824 (Version 4)
Quarter: 2021Q2

REPORT INFORMATION
  Report Type: Spontaneous
  Country: PL (occurrence: PL)
  Receive Date: 20210317
  Receipt Date: 20210420
  Transmission Date: 20210717
  Serious: Yes (Hospitalization, Other)
  Sender: FDA-Public Use
  Company Number: PL-AUROBINDO-AUR-APL-2021-010333

PATIENT
  Age: 54 Year
  Sex: Female

DRUGS (12)
  1. CELECOXIB. [Interacting]
     Active Substance: CELECOXIB
     Indication: BACK PAIN
     Dosage: 200 MILLIGRAM, ONCE A DAY
     Route: 065
  2. RISPERIDONE. [Suspect]
     Active Substance: RISPERIDONE
     Indication: SCHIZOPHRENIA
     Dosage: 4 MILLIGRAM, ONCE A DAY
     Route: 065
  3. AMLODIPINE [Suspect]
     Active Substance: AMLODIPINE BESYLATE
     Indication: HYPERTENSION
     Dosage: 10 MILLIGRAM, ONCE A DAY
     Route: 065
  4. GINGKO BILOBA EXTR [Interacting]
     Active Substance: GINKGO
     Indication: SPINAL PAIN
  5. NEBIVOLOL. [Suspect]
     Active Substance: NEBIVOLOL
     Indication: BACK PAIN
  6. GINGKO BILOBA EXTR [Interacting]
     Active Substance: GINKGO
     Indication: SOMNOLENCE
     Dosage: 240 MILLIGRAM, ONCE A DAY
     Route: 065
  7. PERINDOPRIL TABLET [Suspect]
     Active Substance: PERINDOPRIL
     Indication: HYPERTENSION
     Dosage: UNK
     Route: 065
  8. NEBIVOLOL. [Suspect]
     Active Substance: NEBIVOLOL
     Indication: HYPERTENSION
     Dosage: 5 MILLIGRAM, ONCE A DAY
     Route: 065
  9. NEBIVOLOL. [Suspect]
     Active Substance: NEBIVOLOL
     Indication: DYSLIPIDAEMIA
  10. CELECOXIB. [Interacting]
     Active Substance: CELECOXIB
     Indication: SPINAL PAIN
  11. ATORVASTATIN [Interacting]
     Active Substance: ATORVASTATIN
     Indication: DYSLIPIDAEMIA
     Dosage: 40 MILLIGRAM, ONCE A DAY
     Route: 065
  12. METOPROLOL. [Interacting]
     Active Substance: METOPROLOL
     Indication: PRODUCT USED FOR UNKNOWN INDICATION
     Dosage: UNK
     Route: 065

REACTIONS (6)
  - Drug interaction [Recovered/Resolved]
  - Bradycardia [Recovered/Resolved]
  - Off label use [Unknown]
  - Angioedema [Recovered/Resolved]
  - Lip oedema [Unknown]
  - Tongue oedema [Recovered/Resolved]
